FAERS Safety Report 25583163 (Version 1)
Quarter: 2025Q3

REPORT INFORMATION
  Report Type: Report from Study
  Country: JP (occurrence: JP)
  Receive Date: 20250721
  Receipt Date: 20250721
  Transmission Date: 20251020
  Serious: Yes (Other)
  Sender: UCB
  Company Number: JP-UCBJ-CD202410873UCBPHAPROD

PATIENT
  Age: 17 Year
  Sex: Male
  Weight: 56 kg

DRUGS (14)
  1. FENFLURAMINE HYDROCHLORIDE [Suspect]
     Active Substance: FENFLURAMINE HYDROCHLORIDE
     Indication: Severe myoclonic epilepsy of infancy
     Dosage: 0.04 MILLIGRAM/KILOGRAM, 2X/DAY (BID)
     Route: 048
     Dates: start: 20230522
  2. FENFLURAMINE HYDROCHLORIDE [Suspect]
     Active Substance: FENFLURAMINE HYDROCHLORIDE
     Dosage: 0.08 MILLIGRAM/KILOGRAM, 2X/DAY (BID)
     Route: 048
     Dates: start: 20230608
  3. FENFLURAMINE HYDROCHLORIDE [Suspect]
     Active Substance: FENFLURAMINE HYDROCHLORIDE
     Dosage: 0.1 MILLIGRAM/KILOGRAM, 2X/DAY (BID)
     Route: 048
     Dates: start: 20230921
  4. FENFLURAMINE HYDROCHLORIDE [Suspect]
     Active Substance: FENFLURAMINE HYDROCHLORIDE
     Dosage: 0.12 MILLIGRAM/KILOGRAM, 2X/DAY (BID)
     Route: 048
     Dates: start: 20240201
  5. DIACOMIT [Concomitant]
     Active Substance: STIRIPENTOL
     Indication: Severe myoclonic epilepsy of infancy
     Dosage: 1250 MILLIGRAM, ONCE DAILY (QD)
     Route: 048
     Dates: end: 20220926
  6. DIACOMIT [Concomitant]
     Active Substance: STIRIPENTOL
     Dosage: 1500 MILLIGRAM, ONCE DAILY (QD)
     Route: 048
  7. MYSTAN [Concomitant]
     Active Substance: CLOBAZAM
     Indication: Severe myoclonic epilepsy of infancy
     Dosage: 7 MILLIGRAM, ONCE DAILY (QD)
     Route: 048
     Dates: end: 20241113
  8. MYSTAN [Concomitant]
     Active Substance: CLOBAZAM
     Dosage: 8 MILLIGRAM, ONCE DAILY (QD)
     Route: 048
     Dates: start: 20241114, end: 20250115
  9. MYSTAN [Concomitant]
     Active Substance: CLOBAZAM
     Dosage: 9 MILLIGRAM, ONCE DAILY (QD)
     Route: 048
     Dates: start: 20250116, end: 20250409
  10. MYSTAN [Concomitant]
     Active Substance: CLOBAZAM
     Dosage: 11 MILLIGRAM, ONCE DAILY (QD)
     Route: 048
     Dates: start: 20250410, end: 20250618
  11. MYSTAN [Concomitant]
     Active Substance: CLOBAZAM
     Dosage: 13 MILLIGRAM, ONCE DAILY (QD)
     Route: 048
     Dates: start: 20250619
  12. DEPAKENE [Concomitant]
     Active Substance: VALPROIC ACID
     Indication: Severe myoclonic epilepsy of infancy
     Dosage: 700 MILLIGRAM, ONCE DAILY (QD)
     Route: 048
  13. POTASSIUM BROMIDE [Concomitant]
     Active Substance: POTASSIUM BROMIDE
     Indication: Severe myoclonic epilepsy of infancy
     Dosage: 0.8 GRAM, ONCE DAILY (QD)
     Route: 048
  14. FYCOMPA [Concomitant]
     Active Substance: PERAMPANEL
     Indication: Severe myoclonic epilepsy of infancy
     Dosage: 4 MILLIGRAM, ONCE DAILY (QD)
     Route: 048

REACTIONS (4)
  - Craniofacial fracture [Unknown]
  - Tooth fracture [Unknown]
  - Prescribed underdose [Unknown]
  - Off label use [Unknown]

NARRATIVE: CASE EVENT DATE: 20230522
